FAERS Safety Report 7506195-5 (Version None)
Quarter: 2011Q2

REPORT INFORMATION
  Report Type: 
  Country: None (occurrence: None)
  Receive Date: 20110526
  Receipt Date: 20110512
  Transmission Date: 20111010
  Serious: Yes (Hospitalization)
  Sender: FDA-Public Use
  Company Number: US-JNJFOC-20110506581

PATIENT
  Sex: Male
  Weight: 86.18 kg

DRUGS (11)
  1. REMICADE [Suspect]
     Indication: RHEUMATOID ARTHRITIS
     Route: 042
  2. AVAPRO [Concomitant]
     Indication: CARDIAC DISORDER
     Route: 048
     Dates: start: 20080101
  3. POTASSIUM CHLORIDE [Concomitant]
     Indication: MINERAL SUPPLEMENTATION
     Route: 048
  4. SIMVASTATIN [Concomitant]
     Indication: BLOOD CHOLESTEROL
     Route: 048
  5. NORVASC [Concomitant]
     Indication: BLOOD PRESSURE
     Route: 048
  6. NEXIUM [Concomitant]
     Indication: HIATUS HERNIA
     Route: 048
  7. AVAPRO [Concomitant]
     Indication: HYPERTENSION
     Route: 048
     Dates: start: 20080101
  8. REMICADE [Suspect]
     Indication: PSORIATIC ARTHROPATHY
     Route: 042
  9. REMICADE [Suspect]
     Route: 042
  10. NEXIUM [Concomitant]
     Indication: GASTROOESOPHAGEAL REFLUX DISEASE
     Route: 048
  11. REMICADE [Suspect]
     Route: 042

REACTIONS (7)
  - MALAISE [None]
  - CHEST DISCOMFORT [None]
  - URINARY TRACT INFECTION [None]
  - DRUG INEFFECTIVE [None]
  - ASTHENIA [None]
  - PSORIATIC ARTHROPATHY [None]
  - PSORIASIS [None]
